FAERS Safety Report 5814073-2 (Version None)
Quarter: 2008Q3

REPORT INFORMATION
  Report Type: 
  Country: None (occurrence: None)
  Receive Date: 20080717
  Receipt Date: 20080625
  Transmission Date: 20090109
  Serious: No
  Sender: FDA-Public Use
  Company Number: US-BOEHRINGER INGELHEIM GMBH, GERMANY-2008-BP-07385BP

PATIENT
  Age: 66 Year
  Sex: Male

DRUGS (5)
  1. MIRAPEX [Suspect]
     Indication: PARKINSON'S DISEASE
     Route: 048
     Dates: start: 20061101, end: 20080410
  2. LEXAPRO [Concomitant]
     Indication: DEPRESSION
  3. CELEXA [Concomitant]
     Indication: DEPRESSION
  4. LORAZEPAM [Concomitant]
  5. CITALOPRAM HYDROBROMIDE [Concomitant]

REACTIONS (1)
  - PATHOLOGICAL GAMBLING [None]
